FAERS Safety Report 6336326-4 (Version None)
Quarter: 2009Q3

REPORT INFORMATION
  Report Type: 
  Country: None (occurrence: None)
  Receive Date: 20090901
  Receipt Date: 20090824
  Transmission Date: 20100115
  Serious: Yes (Other)
  Sender: FDA-Public Use
  Company Number: US-AMGEN-KDL351697

PATIENT
  Sex: Female
  Weight: 53.1 kg

DRUGS (7)
  1. ENBREL [Suspect]
     Indication: RHEUMATOID ARTHRITIS
     Route: 058
     Dates: start: 20001001
  2. PLAQUENIL [Concomitant]
     Dates: start: 20001001
  3. CRESTOR [Concomitant]
  4. FOLIC ACID [Concomitant]
  5. NEXIUM [Concomitant]
  6. CELEBREX [Concomitant]
  7. ASPIRIN [Concomitant]

REACTIONS (4)
  - ECCHYMOSIS [None]
  - LUPUS-LIKE SYNDROME [None]
  - SKIN HAEMORRHAGE [None]
  - THROMBOCYTOPENIA [None]
